FAERS Safety Report 8068266-7 (Version None)
Quarter: 2012Q1

REPORT INFORMATION
  Report Type: 
  Country: None (occurrence: None)
  Receive Date: 20120124
  Receipt Date: 20111011
  Transmission Date: 20120608
  Serious: No
  Sender: FDA-Public Use
  Company Number: US-AMGEN-USASP2011052604

PATIENT
  Age: 68 Year
  Sex: Female

DRUGS (3)
  1. PLAQUENIL [Concomitant]
     Indication: ALOPECIA
  2. PROLIA [Suspect]
     Indication: OSTEOPOROSIS POSTMENOPAUSAL
     Dosage: UNK UNK, Q6MO
     Dates: start: 20110928
  3. DESONIDE [Concomitant]
     Dates: start: 20111011

REACTIONS (4)
  - RASH ERYTHEMATOUS [None]
  - BURNING SENSATION [None]
  - RASH PAPULAR [None]
  - RASH PRURITIC [None]
